FAERS Safety Report 5993504-1 (Version None)
Quarter: 2008Q4

REPORT INFORMATION
  Report Type: 
  Country: None (occurrence: None)
  Receive Date: 20081212
  Receipt Date: 20081202
  Transmission Date: 20090506
  Serious: Yes (Hospitalization)
  Sender: FDA-Public Use
  Company Number: NL-JNJFOC-20080103641

PATIENT
  Sex: Female

DRUGS (7)
  1. REMICADE [Suspect]
     Route: 042
  2. REMICADE [Suspect]
     Route: 042
  3. REMICADE [Suspect]
     Indication: CROHN'S DISEASE
     Dosage: TWO INFUSIONS
     Route: 042
  4. PREDNISONE [Concomitant]
  5. SALAZOPYRIN [Concomitant]
  6. IMURAN [Concomitant]
  7. 5-AMINOSALICYLIC ACID [Concomitant]

REACTIONS (2)
  - BASAL CELL CARCINOMA [None]
  - FIBROMA [None]
